FAERS Safety Report 4606125-X (Version None)
Quarter: 2005Q1

REPORT INFORMATION
  Report Type: 
  Country: None (occurrence: None)
  Receive Date: 20050311
  Receipt Date: 20050214
  Transmission Date: 20050727
  Serious: Yes (Other)
  Sender: FDA-Public Use
  Company Number: PHBS2005PT02318

PATIENT
  Age: 56 Year
  Sex: Female
  Weight: 52 kg

DRUGS (3)
  1. LOPRESSOR [Suspect]
     Indication: MITRAL VALVE PROLAPSE
     Dosage: 50 MG, BID
     Route: 048
     Dates: start: 20030101, end: 20050202
  2. LOPRESSOR [Suspect]
     Dosage: 50 MG, BID
     Dates: start: 20050203, end: 20050203
  3. LORENIN [Concomitant]
     Indication: ANXIETY
     Dosage: 2.5 MG, QD
     Route: 048
     Dates: start: 20030101

REACTIONS (6)
  - ANXIETY [None]
  - ARRHYTHMIA [None]
  - HEART RATE IRREGULAR [None]
  - MALAISE [None]
  - PALPITATIONS [None]
  - PERIPHERAL COLDNESS [None]
